FAERS Safety Report 8448722-X (Version None)
Quarter: 2012Q2

REPORT INFORMATION
  Report Type: 
  Country: None (occurrence: None)
  Receive Date: 20120619
  Receipt Date: 20120615
  Transmission Date: 20120825
  Serious: Yes (Hospitalization)
  Sender: FDA-Public Use
  Company Number: NL-AMGEN-NLDSP2012021551

PATIENT
  Age: 50 Year
  Sex: Male
  Weight: 173 kg

DRUGS (6)
  1. VINCRISTINE SULFATE [Concomitant]
     Indication: MALIGNANT LYMPHOID NEOPLASM
     Dosage: 2 MG, UNK
     Route: 042
     Dates: start: 20120308
  2. RITUXIMAB [Concomitant]
     Indication: MALIGNANT LYMPHOID NEOPLASM
     Dosage: 700 MG, UNK
     Route: 042
     Dates: start: 20120308
  3. CYCLOPHOSPHAMIDE [Concomitant]
     Indication: MALIGNANT LYMPHOID NEOPLASM
     Dosage: 1366 MG, UNK
     Route: 042
     Dates: start: 20120308
  4. DOXORUBICIN HCL [Concomitant]
     Indication: MALIGNANT LYMPHOID NEOPLASM
     Dosage: 91 MG, UNK
     Route: 042
     Dates: start: 20120308
  5. PREDNISONE [Concomitant]
     Indication: MALIGNANT LYMPHOID NEOPLASM
     Dosage: 100 MG, UNK
     Route: 048
     Dates: start: 20120308
  6. PEGFILGRASTIM [Suspect]
     Indication: MALIGNANT LYMPHOID NEOPLASM
     Dosage: 6 MG, UNK
     Route: 058
     Dates: start: 20120309

REACTIONS (1)
  - ILEUS [None]
